FAERS Safety Report 8257685-1 (Version None)
Quarter: 2012Q2

REPORT INFORMATION
  Report Type: 
  Country: None (occurrence: None)
  Receive Date: 20120403
  Receipt Date: 20120321
  Transmission Date: 20120825
  Serious: Yes (Life-Threatening, Hospitalization, Disabling, Other)
  Sender: FDA-Public Use
  Company Number: GB-MYLANLABS-2012S1006270

PATIENT
  Age: 72 Year
  Sex: Female
  Weight: 82 kg

DRUGS (7)
  1. OMEPRAZOLE [Concomitant]
     Indication: PRODUCT USED FOR UNKNOWN INDICATION
  2. TRIMOVATE /00456501/ [Concomitant]
     Indication: PRODUCT USED FOR UNKNOWN INDICATION
  3. SALMETEROL + FLUTICASONE [Concomitant]
     Indication: PRODUCT USED FOR UNKNOWN INDICATION
     Route: 055
  4. VENTOLIN [Concomitant]
     Indication: CHRONIC OBSTRUCTIVE PULMONARY DISEASE
     Route: 055
  5. INDAPAMIDE [Suspect]
     Indication: HYPERTENSION
     Route: 048
     Dates: start: 20120301, end: 20120303
  6. TRIMETHOPRIM [Concomitant]
     Indication: PRODUCT USED FOR UNKNOWN INDICATION
     Dates: start: 20120116
  7. TIOTROPIUM BROMIDE [Concomitant]
     Indication: PRODUCT USED FOR UNKNOWN INDICATION

REACTIONS (9)
  - MALAISE [None]
  - HYPOKALAEMIA [None]
  - BLOOD CREATINE PHOSPHOKINASE INCREASED [None]
  - HYPONATRAEMIA [None]
  - MYALGIA [None]
  - RENAL FAILURE ACUTE [None]
  - CONFUSIONAL STATE [None]
  - CONVULSION [None]
  - HYPOMAGNESAEMIA [None]
